FAERS Safety Report 6509140-4 (Version None)
Quarter: 2009Q4

REPORT INFORMATION
  Report Type: 
  Country: None (occurrence: None)
  Receive Date: 20091221
  Receipt Date: 20091210
  Transmission Date: 20100525
  Serious: Yes (Other)
  Sender: FDA-Public Use
  Company Number: US-SANOFI-AVENTIS-2009SA008423

PATIENT
  Sex: Male

DRUGS (6)
  1. ELIGARD [Suspect]
     Route: 058
     Dates: end: 20080601
  2. LASIX [Concomitant]
  3. ADVAIR DISKUS 100/50 [Concomitant]
  4. BENICAR [Concomitant]
  5. LUMIGAN [Concomitant]
  6. BETIMOL [Concomitant]

REACTIONS (2)
  - HYPERGAMMAGLOBULINAEMIA [None]
  - UPPER RESPIRATORY TRACT INFECTION [None]
